FAERS Safety Report 11804196 (Version 2)
Quarter: 2017Q4

REPORT INFORMATION
  Report Type: Spontaneous
  Country: None (occurrence: US)
  Receive Date: 20151204
  Receipt Date: 20171215
  Transmission Date: 20180320
  Serious: Yes (Hospitalization, Disabling)
  Sender: FDA-Public Use
  Company Number: US-ENDO PHARMACEUTICALS INC.-2015-003214

PATIENT
  Age: 39 Year
  Sex: Male
  Weight: 99.77 kg

DRUGS (3)
  1. TESTIM [Suspect]
     Active Substance: TESTOSTERONE
     Indication: ANDROGEN REPLACEMENT THERAPY
     Dosage: UNK UNKNOWN, DAILY
     Route: 062
     Dates: start: 201112, end: 201202
  2. OSTEO BI-FLEX                      /01431201/ [Concomitant]
     Indication: ARTHROPATHY
     Dosage: UNK UNKNOWN, UNKNOWN
     Route: 065
     Dates: start: 2005
  3. PRAZOSIN. [Concomitant]
     Active Substance: PRAZOSIN
     Indication: MENTAL DISORDER
     Dosage: UNK UNKNOWN, UNKNOWN
     Route: 065
     Dates: start: 2012

REACTIONS (5)
  - Anxiety [Not Recovered/Not Resolved]
  - Anhedonia [Not Recovered/Not Resolved]
  - Pain [Not Recovered/Not Resolved]
  - Fear [Not Recovered/Not Resolved]
  - Myocardial infarction [Not Recovered/Not Resolved]

NARRATIVE: CASE EVENT DATE: 201202
